FAERS Safety Report 12957940 (Version 1)
Quarter: 2016Q4

REPORT INFORMATION
  Report Type: Spontaneous
  Country: US (occurrence: US)
  Receive Date: 20161118
  Receipt Date: 20161118
  Transmission Date: 20170207
  Serious: No
  Sender: FDA-Public Use
  Company Number: US-AQUA PHARMACEUTICALS-2016AQU000060

PATIENT
  Sex: Female

DRUGS (2)
  1. VERDESO [Suspect]
     Active Substance: DESONIDE
     Indication: ECZEMA
     Dosage: UNK, QD
     Route: 061
     Dates: start: 201602
  2. MULTIVITAMIN                       /00097801/ [Concomitant]
     Active Substance: VITAMINS
     Dosage: UNK

REACTIONS (3)
  - Drug ineffective [Unknown]
  - Application site burn [Recovered/Resolved]
  - Product physical consistency issue [Unknown]

NARRATIVE: CASE EVENT DATE: 2016
